FAERS Safety Report 7646676-7 (Version None)
Quarter: 2011Q3

REPORT INFORMATION
  Report Type: 
  Country: None (occurrence: None)
  Receive Date: 20110801
  Receipt Date: 20110721
  Transmission Date: 20111222
  Serious: Yes (Hospitalization)
  Sender: FDA-Public Use
  Company Number: GB-JNJFOC-20110709693

PATIENT
  Sex: Male
  Weight: 72.6 kg

DRUGS (9)
  1. PREDNISOLONE [Suspect]
     Indication: DECREASED APPETITE
     Route: 048
     Dates: start: 20110628
  2. ASPIRIN [Concomitant]
     Indication: ATRIAL FIBRILLATION
     Route: 048
     Dates: start: 20110713
  3. ABIRATERONE ACETATE [Suspect]
     Route: 048
  4. ABIRATERONE ACETATE [Suspect]
     Indication: PROSTATE CANCER METASTATIC
     Route: 048
     Dates: start: 20110714, end: 20110720
  5. DIGOXIN [Concomitant]
     Indication: ATRIAL FIBRILLATION
     Route: 048
  6. OMEPRAZOLE [Concomitant]
     Indication: DYSPEPSIA
     Route: 048
     Dates: start: 20110301
  7. ACETAMINOPHEN [Concomitant]
     Indication: PAIN
     Route: 048
  8. TINZAPARIN [Concomitant]
     Indication: ATRIAL FIBRILLATION
     Route: 058
     Dates: start: 20110208, end: 20110712
  9. PREDNISOLONE [Suspect]
     Indication: PROSTATE CANCER METASTATIC
     Route: 048
     Dates: start: 20110628

REACTIONS (2)
  - MUSCULAR WEAKNESS [None]
  - ABASIA [None]
